FAERS Safety Report 7908999-3 (Version None)
Quarter: 2011Q4

REPORT INFORMATION
  Report Type: 
  Country: None (occurrence: None)
  Receive Date: 20111111
  Receipt Date: 20111102
  Transmission Date: 20120403
  Serious: Yes (Hospitalization)
  Sender: FDA-Public Use
  Company Number: PHFR2011GB05074

PATIENT
  Sex: Male
  Weight: 83.3 kg

DRUGS (6)
  1. CLOZARIL [Suspect]
     Indication: SCHIZOPHRENIA
     Dosage: 500 MG QD
     Route: 048
     Dates: start: 20031101
  2. SIMVASTATIN [Concomitant]
     Indication: BLOOD CHOLESTEROL INCREASED
     Dosage: 40 MG, QD
  3. CLOZARIL [Suspect]
     Dosage: 200 MG MANE AND 300 MG NOCTE
     Route: 048
     Dates: start: 20110828
  4. METFORMIN HCL [Concomitant]
     Indication: DIABETES MELLITUS
     Dosage: 1000 MG, BID
  5. ASPIRIN [Concomitant]
     Indication: PLATELET AGGREGATION
     Dosage: 75 MG, QD
  6. TRIHEXYPHENIDYL HCL [Concomitant]
     Indication: SALIVARY HYPERSECRETION
     Dosage: 300 MG, BID
     Route: 048

REACTIONS (5)
  - DIARRHOEA [None]
  - NEUTROPHIL COUNT INCREASED [None]
  - PLATELET COUNT INCREASED [None]
  - WHITE BLOOD CELL COUNT INCREASED [None]
  - GASTROINTESTINAL CARCINOMA [None]
